FAERS Safety Report 18073657 (Version 2)
Quarter: 2020Q3

REPORT INFORMATION
  Report Type: Report from Study
  Country: BR (occurrence: BR)
  Receive Date: 20200727
  Receipt Date: 20200813
  Transmission Date: 20201103
  Serious: Yes (Death, Life-Threatening, Hospitalization)
  Sender: FDA-Public Use
  Company Number: BR-SA-2020SA173758

PATIENT

DRUGS (7)
  1. DIPYRONE [Concomitant]
     Active Substance: DIPYRONE
     Indication: PRE-EXISTING DISEASE
     Dosage: 2000 MG, PRN
     Route: 042
     Dates: start: 20200701, end: 20200701
  2. OSELTAMIVIR PHOSPHATE. [Concomitant]
     Active Substance: OSELTAMIVIR PHOSPHATE
     Indication: PROPHYLAXIS
     Dosage: 75 MG, BID
     Route: 048
     Dates: start: 20200628, end: 20200628
  3. SARILUMAB [Suspect]
     Active Substance: SARILUMAB
     Indication: COVID-19
     Dosage: 1 DF (1 BAG), 1X;INTENDED DOSE, INFUSION RATE 100ML/H
     Route: 042
     Dates: start: 20200628, end: 20200628
  4. AZITHROMYCIN ANHYDROUS. [Concomitant]
     Active Substance: AZITHROMYCIN ANHYDROUS
     Indication: PRE-EXISTING DISEASE
     Dosage: 500 MG, QD
     Route: 042
     Dates: start: 20200627, end: 20200702
  5. DEXAMETHASONE. [Concomitant]
     Active Substance: DEXAMETHASONE
     Indication: PRE-EXISTING DISEASE
     Dosage: 6 MG, QD
     Route: 042
     Dates: start: 20200627, end: 20200702
  6. CEFTRIAXONE. [Concomitant]
     Active Substance: CEFTRIAXONE
     Indication: PRE-EXISTING DISEASE
     Dosage: 2 G, QD
     Route: 042
     Dates: start: 20200627, end: 20200702
  7. HYDROCORTISONE. [Concomitant]
     Active Substance: HYDROCORTISONE
     Indication: PRE-EXISTING DISEASE
     Dosage: 100 MG, 1X
     Route: 042
     Dates: start: 20200702, end: 20200702

REACTIONS (1)
  - Pneumonia bacterial [Fatal]

NARRATIVE: CASE EVENT DATE: 20200702
